FAERS Safety Report 18736366 (Version 2)
Quarter: 2021Q1

REPORT INFORMATION
  Report Type: Spontaneous
  Country: US (occurrence: US)
  Receive Date: 20210113
  Receipt Date: 20210317
  Transmission Date: 20210419
  Serious: No
  Sender: FDA-Public Use
  Company Number: US-MYLANLABS-2021M1001531

PATIENT
  Age: 16 Year
  Sex: Female

DRUGS (1)
  1. EPIPEN [Suspect]
     Active Substance: EPINEPHRINE
     Indication: FOOD ALLERGY
     Dosage: UNK UNK, PRN
     Route: 030

REACTIONS (1)
  - Product quality issue [None]

NARRATIVE: CASE EVENT DATE: 20210108
